FAERS Safety Report 5827306-3 (Version None)
Quarter: 2008Q3

REPORT INFORMATION
  Report Type: 
  Country: None (occurrence: None)
  Receive Date: 20080725
  Receipt Date: 20080718
  Transmission Date: 20090109
  Serious: Yes (Hospitalization)
  Sender: FDA-Public Use
  Company Number: GXKR2008GB06767

PATIENT
  Age: 78 Year
  Sex: Female

DRUGS (13)
  1. OMEPRAZOLE [Suspect]
     Dosage: 40 MG/DAY, UNKNOWN
  2. SPIRINOLACTONE (SPIRONOLACTONE) [Concomitant]
  3. BUMETANIDE [Concomitant]
  4. FUROSEMIDE [Concomitant]
  5. GABAPENTIN [Concomitant]
  6. CODEINE PHOSPHATE AND ACETAMINOPHEN [Concomitant]
  7. HOSCINE BUTYLBROMIDE (HYOSCINE BUTYLBROMIDE) [Concomitant]
  8. GLYCERYL TRINITRATE (GLYCERYL TRINITRATE) [Concomitant]
  9. LOSARTAN POTASSIUM [Concomitant]
  10. ACETYLSALICYCLIC ACID (ACETAYLSALICYCLIC ACID) [Concomitant]
  11. ATORVASTATIN (ATORVATATIN) [Concomitant]
  12. IPRATROPIUM BROMIDE [Concomitant]
  13. SALMETEROL (SALMETEROL) [Concomitant]

REACTIONS (5)
  - AGITATION [None]
  - HALLUCINATION [None]
  - HYPOCALCAEMIA [None]
  - HYPOKALAEMIA [None]
  - HYPOMAGNESAEMIA [None]
